FAERS Safety Report 8827878 (Version 1)
Quarter: 2012Q4

REPORT INFORMATION
  Report Type: 
  Country: US (occurrence: US)
  Receive Date: 20121008
  Receipt Date: 20121008
  Transmission Date: 20130627
  Serious: No
  Sender: FDA-Public Use
  Company Number: US-PFIZER INC-2012248095

PATIENT
  Age: 61 Year
  Sex: Female
  Weight: 52.15 kg

DRUGS (3)
  1. CHANTIX [Suspect]
     Indication: SMOKING CESSATION THERAPY
     Dosage: 50 mg, 1x/day
     Route: 048
     Dates: start: 20120930
  2. CHANTIX [Suspect]
     Dosage: 50 mg, 2x/day
     Route: 048
  3. DIAZEPAM [Concomitant]
     Indication: SLEEP DISORDER
     Dosage: UNK, as needed

REACTIONS (3)
  - Overdose [Unknown]
  - Vomiting [Unknown]
  - Malaise [Unknown]
